FAERS Safety Report 5830467-3 (Version None)
Quarter: 2008Q3

REPORT INFORMATION
  Report Type: 
  Country: None (occurrence: None)
  Receive Date: 20080801
  Receipt Date: 20070530
  Transmission Date: 20090109
  Serious: Yes (Other)
  Sender: FDA-Public Use
  Company Number: US-BRISTOL-MYERS SQUIBB COMPANY-13767421

PATIENT
  Age: 67 Year
  Sex: Female
  Weight: 77 kg

DRUGS (14)
  1. COUMADIN [Suspect]
     Indication: HEART VALVE REPLACEMENT
     Dosage: DOSE WAS BETWEEN 6 AND 8MG
     Route: 048
     Dates: start: 20061107, end: 20070502
  2. COUMADIN [Suspect]
     Indication: CEREBROVASCULAR ACCIDENT
     Dosage: DOSE WAS BETWEEN 6 AND 8MG
     Route: 048
     Dates: start: 20061107, end: 20070502
  3. ACTOS [Concomitant]
  4. ALTACE [Concomitant]
  5. ASPIRIN [Concomitant]
  6. TYLENOL [Concomitant]
  7. GLUCOVANCE [Concomitant]
  8. TAZTIA [Concomitant]
  9. BENTYL [Concomitant]
  10. PROTONIX [Concomitant]
  11. POTASSIUM CHLORIDE [Concomitant]
  12. LASIX [Concomitant]
  13. ALLEGRA [Concomitant]
  14. XANAX [Concomitant]

REACTIONS (1)
  - INTERNATIONAL NORMALISED RATIO FLUCTUATION [None]
